FAERS Safety Report 16878292 (Version 1)
Quarter: 2019Q4

REPORT INFORMATION
  Report Type: Spontaneous
  Country: CH (occurrence: CH)
  Receive Date: 20191002
  Receipt Date: 20191002
  Transmission Date: 20200122
  Serious: Yes (Other)
  Sender: FDA-Public Use
  Company Number: PHHY2019CH227474

PATIENT
  Sex: Female

DRUGS (1)
  1. RANIMED [Suspect]
     Active Substance: RANITIDINE HYDROCHLORIDE
     Indication: GASTRECTOMY
     Dosage: 2 DF, QD
     Route: 065

REACTIONS (3)
  - Skin cancer [Unknown]
  - Pruritus [Unknown]
  - Hypersensitivity [Unknown]
